FAERS Safety Report 5197402-5 (Version None)
Quarter: 2006Q4

REPORT INFORMATION
  Report Type: 
  Country: None (occurrence: None)
  Receive Date: 20060928
  Receipt Date: 20060307
  Transmission Date: 20070319
  Serious: Yes (Other)
  Sender: FDA-Public Use
  Company Number: HQWYE221209MAR06

PATIENT
  Age: 7 Year
  Sex: Male
  Weight: 23 kg

DRUGS (5)
  1. RAPAMUNE [Suspect]
     Indication: BONE MARROW TRANSPLANT
     Dosage: 1 MG 2X PER 1 DAY, ORAL
     Route: 048
     Dates: end: 20060220
  2. FLUCONAZOLE [Suspect]
     Indication: ASPERGILLOSIS
     Dosage: 100 MG 1X PER 1 DAY
     Dates: end: 20060220
  3. FLUCONAZOLE [Suspect]
     Indication: ASPERGILLOSIS
     Dosage: 100 MG 1X PER 1 DAY
     Dates: start: 20060101
  4. PENTAMIDINE (PENTAMIDINE) [Concomitant]
  5. CELLCEPT [Concomitant]

REACTIONS (2)
  - DRUG INTERACTION [None]
  - IMMUNOSUPPRESSANT DRUG LEVEL INCREASED [None]
